FAERS Safety Report 6380617-8 (Version None)
Quarter: 2009Q3

REPORT INFORMATION
  Report Type: 
  Country: None (occurrence: None)
  Receive Date: 20090929
  Receipt Date: 20090915
  Transmission Date: 20100115
  Serious: Yes (Death)
  Sender: FDA-Public Use
  Company Number: US-MYLANLABS-2009S1016211

PATIENT
  Age: 35 Year
  Sex: Male

DRUGS (6)
  1. METHADONE HYDROCHLORIDE [Suspect]
     Indication: PAIN
     Route: 048
  2. METHADONE HYDROCHLORIDE [Suspect]
     Route: 048
  3. METHADONE HYDROCHLORIDE [Suspect]
  4. SERTRALINE HCL [Interacting]
  5. VENLAFAXINE [Interacting]
  6. TOPIRAMATE [Concomitant]

REACTIONS (4)
  - DRUG INTERACTION [None]
  - INTENTIONAL OVERDOSE [None]
  - NARCOTIC INTOXICATION [None]
  - SEROTONIN SYNDROME [None]
